FAERS Safety Report 21064163 (Version 1)
Quarter: 2022Q3

REPORT INFORMATION
  Report Type: Spontaneous
  Country: US (occurrence: None)
  Receive Date: 20220709
  Receipt Date: 20220709
  Transmission Date: 20221027
  Serious: Yes (unspecified)
  Sender: FDA-Public Use
  Company Number: None

PATIENT
  Age: 55 Year
  Sex: Female
  Weight: 77.85 kg

DRUGS (1)
  1. ADDYI [Suspect]
     Active Substance: FLIBANSERIN
     Indication: Disturbance in sexual arousal
     Dosage: FREQUENCY : AT BEDTIME;?
     Route: 048
     Dates: start: 20220703, end: 20220708

REACTIONS (4)
  - Hypersomnia [None]
  - Dizziness [None]
  - Gait disturbance [None]
  - Dissociation [None]

NARRATIVE: CASE EVENT DATE: 20220709
